FAERS Safety Report 17293194 (Version 2)
Quarter: 2020Q3

REPORT INFORMATION
  Report Type: Report from Study
  Country: US (occurrence: US)
  Receive Date: 20200121
  Receipt Date: 20200803
  Transmission Date: 20201102
  Serious: Yes (Hospitalization, Other)
  Sender: FDA-Public Use
  Company Number: NVSC2020US010383

PATIENT
  Age: 58 Year
  Sex: Male

DRUGS (2)
  1. ENTRESTO [Suspect]
     Active Substance: SACUBITRIL\VALSARTAN
     Indication: PRODUCT USED FOR UNKNOWN INDICATION
     Dosage: UNK
     Route: 048
     Dates: start: 201911
  2. ENTRESTO [Suspect]
     Active Substance: SACUBITRIL\VALSARTAN
     Dosage: UNK UNK, BID
     Route: 048
     Dates: start: 201912

REACTIONS (8)
  - Dizziness [Unknown]
  - Loss of consciousness [Unknown]
  - Scrotal swelling [Unknown]
  - Dyspnoea [Recovered/Resolved]
  - Ascites [Unknown]
  - Weight decreased [Unknown]
  - Visual impairment [Unknown]
  - Weight increased [Unknown]

NARRATIVE: CASE EVENT DATE: 201912
